FAERS Safety Report 21481567 (Version 1)
Quarter: 2022Q4

REPORT INFORMATION
  Report Type: Spontaneous
  Country: CN (occurrence: CN)
  Receive Date: 20221020
  Receipt Date: 20221020
  Transmission Date: 20230112
  Serious: Yes (Other)
  Sender: FDA-Public Use
  Company Number: CN-009507513-2210CHN004986

PATIENT
  Age: 86 Year
  Sex: Male
  Weight: 42 kg

DRUGS (3)
  1. CILASTATIN SODIUM\IMIPENEM [Suspect]
     Active Substance: CILASTATIN SODIUM\IMIPENEM
     Indication: Lung neoplasm malignant
     Dosage: 0.5G, Q8H
     Route: 041
     Dates: start: 20220829, end: 20220908
  2. VORICONAZOLE [Suspect]
     Active Substance: VORICONAZOLE
     Indication: Lung neoplasm malignant
     Dosage: 200MG, Q12H
     Route: 048
     Dates: start: 20220905, end: 20220908
  3. SODIUM CHLORIDE [Concomitant]
     Active Substance: SODIUM CHLORIDE
     Indication: Lung neoplasm malignant
     Dosage: 100ML, Q8H
     Route: 041

REACTIONS (5)
  - Delirium [Recovered/Resolved]
  - Restlessness [Recovered/Resolved]
  - Mania [Unknown]
  - Oxygen saturation decreased [Unknown]
  - Product use in unapproved indication [Unknown]

NARRATIVE: CASE EVENT DATE: 20220829
